FAERS Safety Report 8508393-0 (Version None)
Quarter: 2012Q3

REPORT INFORMATION
  Report Type: 
  Country: None (occurrence: None)
  Receive Date: 20120713
  Receipt Date: 20120710
  Transmission Date: 20120928
  Serious: Yes (Other)
  Sender: FDA-Public Use
  Company Number: PHEH2012US013668

PATIENT
  Sex: Female

DRUGS (3)
  1. GILENYA [Suspect]
     Indication: MULTIPLE SCLEROSIS
     Dosage: 0.5 MG, QD
     Route: 048
     Dates: start: 20120629
  2. NUVIGIL [Concomitant]
     Dosage: 150 MG, UNK
  3. ANTIDEPRESSANTS [Concomitant]

REACTIONS (3)
  - FATIGUE [None]
  - ARRHYTHMIA SUPRAVENTRICULAR [None]
  - SINUS TACHYCARDIA [None]
